FAERS Safety Report 18694175 (Version 1)
Quarter: 2021Q1

REPORT INFORMATION
  Report Type: Spontaneous
  Country: US (occurrence: US)
  Receive Date: 20210104
  Receipt Date: 20210104
  Transmission Date: 20210419
  Serious: Yes (Other)
  Sender: FDA-Public Use
  Company Number: US-SPC-000001

PATIENT
  Age: 41 Year

DRUGS (3)
  1. BENZYLPENICILLIN [Suspect]
     Active Substance: PENICILLIN G
     Indication: TOXIC SHOCK SYNDROME STREPTOCOCCAL
     Route: 042
  2. IMMUNOGLOBULIN HUMAN NORMAL [Suspect]
     Active Substance: HUMAN IMMUNOGLOBULIN G
     Indication: TOXIC SHOCK SYNDROME STREPTOCOCCAL
     Route: 042
  3. CLINDAMYCIN. [Suspect]
     Active Substance: CLINDAMYCIN
     Indication: TOXIC SHOCK SYNDROME STREPTOCOCCAL
     Route: 042

REACTIONS (3)
  - Acute respiratory distress syndrome [Unknown]
  - Infarction [Unknown]
  - Product use in unapproved indication [Unknown]
